FAERS Safety Report 12404417 (Version 5)
Quarter: 2017Q1

REPORT INFORMATION
  Report Type: Spontaneous
  Country: US (occurrence: US)
  Receive Date: 20160525
  Receipt Date: 20170208
  Transmission Date: 20170428
  Serious: Yes (Death, Hospitalization, Disabling, Other)
  Sender: FDA-Public Use
  Company Number: US-REGENERON PHARMACEUTICALS, INC.-2016-17396

PATIENT

DRUGS (3)
  1. EYLEA [Suspect]
     Active Substance: AFLIBERCEPT
     Indication: MACULAR DEGENERATION
     Dosage: 2 MG MILLIGRAM(S)/0.05 ML
     Route: 031
     Dates: start: 20160209
  2. EYLEA [Suspect]
     Active Substance: AFLIBERCEPT
     Dosage: UNK
     Route: 031
     Dates: start: 201604
  3. PLAVIX [Concomitant]
     Active Substance: CLOPIDOGREL BISULFATE
     Indication: PRODUCT USED FOR UNKNOWN INDICATION
     Dosage: 75 MG MILLIGRAM(S), UNK

REACTIONS (7)
  - Lacrimation increased [Unknown]
  - Blindness unilateral [Unknown]
  - Extraocular muscle paresis [Unknown]
  - Death [Fatal]
  - Dry age-related macular degeneration [Unknown]
  - Pneumonia [Unknown]
  - Eye disorder [Unknown]

NARRATIVE: CASE EVENT DATE: 201605
